FAERS Safety Report 9687911 (Version 1)
Quarter: 2013Q4

REPORT INFORMATION
  Report Type: Spontaneous
  Country: BR (occurrence: None)
  Receive Date: 20131112
  Receipt Date: 20131112
  Transmission Date: 20140711
  Serious: Yes (Hospitalization, Other)
  Sender: FDA-Public Use
  Company Number: SYM-2013-12626

PATIENT
  Age: 82 Year
  Sex: Female
  Weight: 50 kg

DRUGS (6)
  1. TIMOPTOL [Suspect]
     Indication: INTRAOCULAR PRESSURE TEST ABNORMAL
     Dosage: 2 DROPS IN EACH EYE DAILY.
     Route: 047
  2. TIMOPTOL [Suspect]
     Indication: INTRAOCULAR PRESSURE TEST ABNORMAL
     Dosage: 2 DROPS IN EACH EYE DAILY.
     Route: 047
  3. ASPIRIN (ACETYLSALICYLIC ACID) [Concomitant]
  4. PRESSAT (AMLODIPINE BESILATE) [Concomitant]
  5. HYZAAR (HYZAAR) (HYDROCHLOROTHIAZIDE. LOSARTAN POTASSIUM) [Concomitant]
  6. TIMOLOL (TIMOLOL MALEATE) [Concomitant]

REACTIONS (6)
  - Venous thrombosis limb [None]
  - Eye irritation [None]
  - Eye pruritus [None]
  - Impaired healing [None]
  - Skin graft [None]
  - Wound [None]
